FAERS Safety Report 9308781 (Version 1)
Quarter: 2013Q2

REPORT INFORMATION
  Report Type: Spontaneous
  Country: US (occurrence: US)
  Receive Date: 20130524
  Receipt Date: 20130524
  Transmission Date: 20140414
  Serious: No
  Sender: FDA-Public Use
  Company Number: US-NOVEN-13US006311

PATIENT
  Sex: Female

DRUGS (3)
  1. MINIVELLE [Suspect]
     Indication: PRODUCT USED FOR UNKNOWN INDICATION
     Dosage: 0.05 MG, 2/WK
     Route: 062
     Dates: start: 20130214, end: 20130216
  2. IBUPROFEN [Concomitant]
     Indication: HEADACHE
     Dosage: 3 PILLS
     Route: 048
  3. SUDAFED                            /00076302/ [Concomitant]
     Indication: SINUSITIS
     Dosage: UNK

REACTIONS (5)
  - Dizziness [Recovering/Resolving]
  - Feeling abnormal [Recovering/Resolving]
  - Headache [Recovering/Resolving]
  - Sinusitis [Recovering/Resolving]
  - Nausea [Recovering/Resolving]
